FAERS Safety Report 12192392 (Version 2)
Quarter: 2016Q1

REPORT INFORMATION
  Report Type: Spontaneous
  Country: BR (occurrence: BR)
  Receive Date: 20160318
  Receipt Date: 20160331
  Transmission Date: 20160526
  Serious: Yes (Other)
  Sender: FDA-Public Use
  Company Number: PHHY2016BR036110

PATIENT
  Sex: Male
  Weight: 55 kg

DRUGS (3)
  1. TOFRANIL [Suspect]
     Active Substance: IMIPRAMINE HYDROCHLORIDE
     Indication: ANXIETY
     Dosage: 2 DF (2 TABLETS), QHS
     Route: 048
     Dates: start: 2008
  2. RITALIN [Suspect]
     Active Substance: METHYLPHENIDATE HYDROCHLORIDE
     Indication: ATTENTION DEFICIT/HYPERACTIVITY DISORDER
     Dosage: 1 DF (ONE TABLET), QD
     Route: 048
     Dates: start: 2008
  3. TOFRANIL [Suspect]
     Active Substance: IMIPRAMINE HYDROCHLORIDE
     Indication: URINARY TRACT DISORDER

REACTIONS (3)
  - Headache [Recovering/Resolving]
  - Drug dependence [Unknown]
  - Product use issue [Unknown]
